FAERS Safety Report 25402305 (Version 2)
Quarter: 2025Q4

REPORT INFORMATION
  Report Type: Spontaneous
  Country: EU (occurrence: EU)
  Receive Date: 20250605
  Receipt Date: 20251117
  Transmission Date: 20260118
  Serious: Yes (Other)
  Sender: TEVA
  Company Number: EU-TEVA-VS-3338089

PATIENT
  Age: 68 Year
  Sex: Female

DRUGS (1)
  1. QUETIAPINE [Suspect]
     Active Substance: QUETIAPINE
     Indication: Product used for unknown indication
     Dosage: SMALLEST PILL 25 MG; AT LEAST 10 YEARS AGO AND END DATE INDEFINITE;SERIAL NUMBER (SN): 1008081302...
     Route: 065

REACTIONS (6)
  - Drug dependence [Not Recovered/Not Resolved]
  - Nasal polyps [Unknown]
  - Somnolence [Unknown]
  - Restless legs syndrome [Unknown]
  - Nasal dryness [Unknown]
  - Fatigue [Unknown]
